FAERS Safety Report 9415260 (Version 2)
Quarter: 2016Q3

REPORT INFORMATION
  Report Type: Report from Study
  Country: GR (occurrence: GR)
  Receive Date: 20130723
  Receipt Date: 20160725
  Transmission Date: 20161109
  Serious: Yes (Hospitalization)
  Sender: FDA-Public Use
  Company Number: GR-ROCHE-1251588

PATIENT
  Sex: Female
  Weight: 84 kg

DRUGS (2)
  1. METHOTREXATE. [Suspect]
     Active Substance: METHOTREXATE
     Indication: RHEUMATOID ARTHRITIS
     Dosage: 5 MG EVERY SATURDAY AND SUNDAY
     Route: 048
     Dates: start: 200811, end: 20110127
  2. RITUXIMAB [Suspect]
     Active Substance: RITUXIMAB
     Indication: RHEUMATOID ARTHRITIS
     Dosage: 2 DOSES OF 1000 MG WITH 15 DAYS INTERVAL FROM DOSE TO DOSE, PER SESSION - SUCH SESSIONS WERE REPEATE
     Route: 042
     Dates: start: 20090122

REACTIONS (4)
  - Hepatic fibrosis [Unknown]
  - Hepatic steatosis [Unknown]
  - Hepatitis B [Recovering/Resolving]
  - Chronic hepatitis [Recovering/Resolving]

NARRATIVE: CASE EVENT DATE: 2011
